FAERS Safety Report 5578390-6 (Version None)
Quarter: 2007Q4

REPORT INFORMATION
  Report Type: 
  Country: None (occurrence: None)
  Receive Date: 20071231
  Receipt Date: 20071219
  Transmission Date: 20080405
  Serious: Yes (Other)
  Sender: FDA-Public Use
  Company Number: US-PFIZER INC-2007107890

PATIENT
  Sex: Male
  Weight: 72.727 kg

DRUGS (5)
  1. CHANTIX [Suspect]
     Indication: SMOKING CESSATION THERAPY
     Dates: start: 20071127, end: 20071206
  2. PROPRANOLOL [Concomitant]
  3. LISINOPRIL [Concomitant]
  4. GEMFIBROZIL [Concomitant]
  5. ACETYLSALICYLIC ACID SRT [Concomitant]

REACTIONS (3)
  - DYSPNOEA [None]
  - HALLUCINATION [None]
  - VASCULAR GRAFT [None]
